FAERS Safety Report 9234232 (Version 1)
Quarter: 2013Q2

REPORT INFORMATION
  Report Type: Report from Study
  Country: US (occurrence: US)
  Receive Date: 20130416
  Receipt Date: 20130416
  Transmission Date: 20140414
  Serious: Yes (Other)
  Sender: FDA-Public Use
  Company Number: US-ROCHE-1074890

PATIENT
  Age: 52 Year
  Sex: Male
  Weight: 59.45 kg

DRUGS (6)
  1. BEVACIZUMAB [Suspect]
     Indication: NON-SMALL CELL LUNG CANCER
     Dosage: OVER 30 MINUTES ON DAY1 Q3 WEEKS TILL 1Y;DATE OF LAST DOSE:28/DEC/2011
     Route: 042
     Dates: start: 20111208
  2. BEVACIZUMAB [Suspect]
     Route: 042
     Dates: end: 20120124
  3. BEVACIZUMAB [Suspect]
     Route: 065
     Dates: end: 20120131
  4. BEVACIZUMAB [Suspect]
     Dosage: DOSE PRIOR TO SAE:28/DEC/2011
     Route: 042
     Dates: start: 20110812
  5. PEMETREXED [Suspect]
     Indication: NON-SMALL CELL LUNG CANCER
     Dosage: OVER 10 MINUTES ON DAY 1;DATE OF LAST DOSE:31/JAN/2012
     Route: 042
     Dates: start: 20111208
  6. CISPLATIN [Suspect]
     Indication: NON-SMALL CELL LUNG CANCER
     Dosage: OVER 30 MINUTES ON DAY 1;DATE OF LAST DOSE:31/JAN/2012
     Route: 042
     Dates: start: 20111208

REACTIONS (2)
  - Proteinuria [Recovered/Resolved]
  - Blood creatinine increased [Not Recovered/Not Resolved]
